FAERS Safety Report 6936345-0 (Version None)
Quarter: 2010Q3

REPORT INFORMATION
  Report Type: 
  Country: None (occurrence: None)
  Receive Date: 20100817
  Receipt Date: 20100609
  Transmission Date: 20110219
  Serious: No
  Sender: FDA-Public Use
  Company Number: WAES 1006USA01502

PATIENT
  Age: 15 Year
  Sex: Male

DRUGS (2)
  1. ISENTRESS [Suspect]
     Dosage: 400 MG/BID/PO
     Route: 048
     Dates: start: 20100428
  2. TRUVADA [Concomitant]

REACTIONS (1)
  - RASH [None]
